FAERS Safety Report 22105309 (Version 4)
Quarter: 2024Q1

REPORT INFORMATION
  Report Type: Report from Study
  Country: US (occurrence: US)
  Receive Date: 20230317
  Receipt Date: 20240122
  Transmission Date: 20240410
  Serious: Yes (Death, Hospitalization, Other)
  Sender: FDA-Public Use
  Company Number: US-ACADIA PHARMACEUTICALS INC.-ACA-2023-PIM-000722

PATIENT
  Age: 75 Year
  Sex: Male

DRUGS (24)
  1. NUPLAZID [Suspect]
     Active Substance: PIMAVANSERIN TARTRATE
     Indication: Parkinson^s disease psychosis
     Dosage: 34 MILLIGRAM, QD
     Route: 048
     Dates: start: 20230218, end: 20231126
  2. NUPLAZID [Suspect]
     Active Substance: PIMAVANSERIN TARTRATE
     Indication: Hallucination
  3. NUPLAZID [Suspect]
     Active Substance: PIMAVANSERIN TARTRATE
     Indication: Delusion
  4. AMANTADINE [Concomitant]
     Active Substance: AMANTADINE
  5. AMLODIPINE [Concomitant]
     Active Substance: AMLODIPINE BESYLATE
  6. ASPIRIN [Concomitant]
     Active Substance: ASPIRIN
  7. BUPROPION [Concomitant]
     Active Substance: BUPROPION
  8. VITAMIN D3 [Concomitant]
     Active Substance: CHOLECALCIFEROL
  9. VITAMIN B12 [Concomitant]
     Active Substance: CYANOCOBALAMIN
  10. DONEPEZIL [Concomitant]
     Active Substance: DONEPEZIL
  11. DULOXETINE [Concomitant]
     Active Substance: DULOXETINE
  12. FINASTERIDE [Concomitant]
     Active Substance: FINASTERIDE
  13. GABAPENTIN [Concomitant]
     Active Substance: GABAPENTIN
  14. HYOSCYAMINE [Concomitant]
     Active Substance: HYOSCYAMINE
  15. KETOTIFEN [Concomitant]
     Active Substance: KETOTIFEN
  16. SYNTHROID [Concomitant]
     Active Substance: LEVOTHYROXINE SODIUM
  17. LINZESS [Concomitant]
     Active Substance: LINACLOTIDE
  18. MELATONIN [Concomitant]
     Active Substance: MELATONIN
  19. MIRABEGRON [Concomitant]
     Active Substance: MIRABEGRON
  20. GLYCOLAX [Concomitant]
     Active Substance: POLYETHYLENE GLYCOL 3350
  21. SIMVASTATIN [Concomitant]
     Active Substance: SIMVASTATIN
  22. VESICARE [Concomitant]
     Active Substance: SOLIFENACIN SUCCINATE
  23. ZYRTEC [Concomitant]
     Active Substance: CETIRIZINE HYDROCHLORIDE
  24. CARBIDOPA LEVODOPA [Concomitant]
     Active Substance: CARBIDOPA\LEVODOPA
     Dosage: 25-100

REACTIONS (3)
  - Cardiac arrest [Recovered/Resolved]
  - Insomnia [Unknown]
  - Hallucination [Not Recovered/Not Resolved]

NARRATIVE: CASE EVENT DATE: 20230201
